FAERS Safety Report 8466467-7 (Version None)
Quarter: 2012Q2

REPORT INFORMATION
  Report Type: 
  Country: None (occurrence: None)
  Receive Date: 20120620
  Receipt Date: 20120620
  Transmission Date: 20120825
  Serious: Yes (Other)
  Sender: FDA-Public Use
  Company Number: None

PATIENT

DRUGS (1)
  1. BONIVA [Suspect]
     Indication: OSTEOARTHRITIS
     Dosage: 150 MG ONCE A MONTH PO
     Route: 048
     Dates: start: 20120601

REACTIONS (2)
  - NASOPHARYNGITIS [None]
  - CHILLS [None]
